FAERS Safety Report 19123150 (Version 1)
Quarter: 2021Q2

REPORT INFORMATION
  Report Type: Report from Study
  Country: RU (occurrence: RU)
  Receive Date: 20210412
  Receipt Date: 20210412
  Transmission Date: 20210717
  Serious: Yes (Other)
  Sender: FDA-Public Use
  Company Number: RU-INCYTE CORPORATION-2020IN013584

PATIENT

DRUGS (4)
  1. JAKAVI [Suspect]
     Active Substance: RUXOLITINIB
     Indication: PRIMARY MYELOFIBROSIS
     Dosage: 30 MG PER DAY
     Route: 065
     Dates: start: 201612
  2. JAKAVI [Suspect]
     Active Substance: RUXOLITINIB
     Dosage: DOSE ESCALATION
     Route: 065
  3. JAKAVI [Suspect]
     Active Substance: RUXOLITINIB
     Dosage: 15 MG PER DAY
     Route: 065
  4. WARFARIN [Concomitant]
     Active Substance: WARFARIN
     Indication: PRODUCT USED FOR UNKNOWN INDICATION
     Dosage: UNK
     Route: 065
     Dates: end: 202003

REACTIONS (17)
  - Varices oesophageal [Unknown]
  - Abdominal pain [Unknown]
  - Biliary cirrhosis [Unknown]
  - Vasodilatation [Unknown]
  - Hyperhidrosis [Unknown]
  - Peripheral swelling [Unknown]
  - Splenomegaly [Unknown]
  - Thrombocytopenia [Not Recovered/Not Resolved]
  - Portal vein thrombosis [Not Recovered/Not Resolved]
  - Leukopenia [Unknown]
  - Portal hypertension [Unknown]
  - Back pain [Unknown]
  - Abdominal distension [Unknown]
  - Portal vein dilatation [Unknown]
  - Fatigue [Unknown]
  - Pain [Unknown]
  - Asthenia [Unknown]

NARRATIVE: CASE EVENT DATE: 2017
